FAERS Safety Report 12736378 (Version 9)
Quarter: 2018Q3

REPORT INFORMATION
  Report Type: Spontaneous
  Country: US (occurrence: US)
  Receive Date: 20160913
  Receipt Date: 20180816
  Transmission Date: 20181010
  Serious: Yes (Other)
  Sender: FDA-Public Use
  Company Number: PHEH2016US023035

PATIENT
  Sex: Female
  Weight: 113.38 kg

DRUGS (2)
  1. ZOFRAN [Suspect]
     Active Substance: ONDANSETRON HYDROCHLORIDE
     Indication: VOMITING IN PREGNANCY
     Dosage: 8 MG, TID
     Route: 048
     Dates: start: 20030821, end: 20030826
  2. ZOFRAN [Suspect]
     Active Substance: ONDANSETRON HYDROCHLORIDE
     Dosage: 8 MG, TID
     Route: 048
     Dates: start: 20031023, end: 20031220

REACTIONS (8)
  - Gestational hypertension [Unknown]
  - Asthma [Unknown]
  - Sinusitis [Unknown]
  - Ear infection [Unknown]
  - Maternal exposure during pregnancy [Unknown]
  - Injury [Unknown]
  - Headache [Unknown]
  - Product use in unapproved indication [Unknown]
